FAERS Safety Report 17559753 (Version 1)
Quarter: 2020Q1

REPORT INFORMATION
  Report Type: Spontaneous
  Country: FR (occurrence: FR)
  Receive Date: 20200319
  Receipt Date: 20200319
  Transmission Date: 20200409
  Serious: Yes (Death)
  Sender: FDA-Public Use
  Company Number: FR-ACCORD-176410

PATIENT
  Age: 73 Year
  Sex: Male
  Weight: 115 kg

DRUGS (4)
  1. ERBITUX [Suspect]
     Active Substance: CETUXIMAB
     Indication: COLORECTAL CANCER METASTATIC
     Dosage: 5 MG/ML, SOLUTION FOR INFUSION
     Route: 041
     Dates: start: 20200212, end: 20200212
  2. FLUOROURACILE ACCORD [Suspect]
     Active Substance: FLUOROURACIL
     Indication: COLORECTAL CANCER METASTATIC
     Dosage: 50 MG/ML, 800 MG IN BOLUS OF 10 MIN THEN 4800 MG IN 48H
     Route: 041
     Dates: start: 20200212, end: 20200214
  3. INNOHEP [Concomitant]
     Active Substance: TINZAPARIN SODIUM
     Indication: EMBOLISM VENOUS
     Dates: start: 20200124, end: 20200214
  4. OXALIPLATINE ACCORD [Suspect]
     Active Substance: OXALIPLATIN
     Indication: COLORECTAL CANCER METASTATIC
     Dosage: STRENGTH :5 MG/ML
     Route: 041
     Dates: start: 20200212, end: 20200212

REACTIONS (1)
  - Cardio-respiratory arrest [Fatal]

NARRATIVE: CASE EVENT DATE: 20200214
